FAERS Safety Report 16012340 (Version 1)
Quarter: 2019Q1

REPORT INFORMATION
  Report Type: Report from Study
  Country: US (occurrence: US)
  Receive Date: 20190227
  Receipt Date: 20190227
  Transmission Date: 20190418
  Serious: Yes (Other)
  Sender: FDA-Public Use
  Company Number: US-BAYER-2019-016975

PATIENT
  Age: 59 Year
  Sex: Female

DRUGS (1)
  1. STIVARGA [Suspect]
     Active Substance: REGORAFENIB
     Indication: COLORECTAL CANCER METASTATIC
     Dosage: 120 MG, QD (FOR 21 DAYS OF 28 DAY CYCLE)
     Route: 048
     Dates: start: 20190118, end: 201902

REACTIONS (10)
  - Rash generalised [None]
  - Malaise [None]
  - Chills [None]
  - Fatigue [Not Recovered/Not Resolved]
  - Transfusion [None]
  - Fatigue [None]
  - Pre-existing condition improved [None]
  - Headache [None]
  - Dysphonia [Not Recovered/Not Resolved]
  - Off label use [None]

NARRATIVE: CASE EVENT DATE: 2019
